FAERS Safety Report 7999089-2 (Version None)
Quarter: 2011Q4

REPORT INFORMATION
  Report Type: 
  Country: None (occurrence: None)
  Receive Date: 20111221
  Receipt Date: 20111216
  Transmission Date: 20120403
  Serious: Yes (Death)
  Sender: FDA-Public Use
  Company Number: JP-EISAI INC-E7389-01622-CLI-JP

PATIENT
  Sex: Female
  Weight: 45 kg

DRUGS (20)
  1. NOVAMIN [Concomitant]
     Indication: PROPHYLAXIS
     Route: 048
  2. MS CONTIN [Concomitant]
     Indication: CANCER PAIN
     Route: 048
  3. OXYCONTIN [Concomitant]
     Indication: CANCER PAIN
     Route: 048
  4. POSTERISAN [Concomitant]
     Indication: ANAL FISTULA
     Route: 054
  5. HALAVEN [Suspect]
     Indication: METASTASES TO BONE
  6. ALDACTONE [Concomitant]
     Indication: OEDEMA
     Route: 048
  7. ASVERIN [Concomitant]
     Indication: COUGH
     Route: 048
  8. SODIUM BICARBONATE [Concomitant]
     Indication: PROPHYLAXIS
     Route: 048
  9. MAGNESIUM OXIDE [Concomitant]
     Indication: PROPHYLAXIS
     Route: 048
  10. OXINORM [Concomitant]
     Indication: CANCER PAIN
     Route: 048
  11. HALAVEN [Suspect]
     Indication: BREAST CANCER RECURRENT
     Route: 041
     Dates: start: 20110909, end: 20110909
  12. HALAVEN [Suspect]
     Indication: METASTASES TO LUNG
     Route: 041
     Dates: start: 20110812, end: 20110909
  13. HALAVEN [Suspect]
     Indication: METASTASES TO LIVER
  14. LASIX [Concomitant]
     Indication: OEDEMA
     Route: 048
  15. SELBEX [Concomitant]
     Indication: PROPHYLAXIS
     Route: 048
  16. MORPHINE [Concomitant]
     Indication: CANCER PAIN
     Route: 048
  17. SALIPARA CODEINE [Concomitant]
     Indication: COUGH
     Route: 048
  18. LOXONIN [Concomitant]
     Indication: CANCER PAIN
     Route: 048
  19. ZYPREXA [Concomitant]
     Indication: CANCER PAIN
     Route: 048
  20. DEXALTIN [Concomitant]
     Indication: PROPHYLAXIS

REACTIONS (1)
  - LYMPHANGIOSIS CARCINOMATOSA [None]
